FAERS Safety Report 13349598 (Version 1)
Quarter: 2017Q1

REPORT INFORMATION
  Report Type: Report from Study
  Country: BR (occurrence: BR)
  Receive Date: 20170320
  Receipt Date: 20170320
  Transmission Date: 20170428
  Serious: Yes (Other)
  Sender: FDA-Public Use
  Company Number: PHHY2017BR041786

PATIENT
  Sex: Female
  Weight: 80 kg

DRUGS (1)
  1. TEGRETOL [Suspect]
     Active Substance: CARBAMAZEPINE
     Indication: EPILEPSY
     Dosage: 400 MG, TID
     Route: 048

REACTIONS (7)
  - Fall [Unknown]
  - Lower limb fracture [Unknown]
  - Femur fracture [Unknown]
  - Bone pain [Unknown]
  - Epilepsy [Unknown]
  - Limb injury [Unknown]
  - Nervousness [Unknown]
